FAERS Safety Report 7590581-1 (Version None)
Quarter: 2011Q3

REPORT INFORMATION
  Report Type: 
  Country: None (occurrence: None)
  Receive Date: 20110705
  Receipt Date: 20110628
  Transmission Date: 20111222
  Serious: Yes (Other)
  Sender: FDA-Public Use
  Company Number: US-PFIZER INC-2011124342

PATIENT
  Sex: Female
  Weight: 81.633 kg

DRUGS (8)
  1. LISINOPRIL AND HYDROCHLOROTHIAZIDE [Concomitant]
     Indication: HYPERTENSION
     Dosage: UNK
  2. OMEPRAZOLE [Concomitant]
     Indication: GASTROOESOPHAGEAL REFLUX DISEASE
     Dosage: UNK
  3. CRESTOR [Concomitant]
     Indication: BLOOD CHOLESTEROL INCREASED
     Dosage: 10 MG, UNK
  4. ONGLYZA [Concomitant]
     Indication: DIABETES MELLITUS
     Dosage: UNK
  5. TRICOR [Concomitant]
     Dosage: UNK
  6. TRAZODONE [Concomitant]
     Indication: SLEEP DISORDER
     Dosage: UNK
  7. LOVAZA [Concomitant]
     Dosage: UNK
     Route: 048
  8. CHANTIX [Suspect]
     Indication: SMOKING CESSATION THERAPY
     Dosage: 0.5 MG, 1X/DAY
     Route: 048
     Dates: start: 20070101, end: 20070101

REACTIONS (1)
  - GLYCOSYLATED HAEMOGLOBIN INCREASED [None]
